FAERS Safety Report 5258873-9 (Version None)
Quarter: 2007Q1

REPORT INFORMATION
  Report Type: 
  Country: None (occurrence: None)
  Receive Date: 20070308
  Receipt Date: 20070221
  Transmission Date: 20070707
  Serious: Yes (Other)
  Sender: FDA-Public Use
  Company Number: JP-PFIZER INC-2007012986

PATIENT
  Age: 67 Year
  Sex: Female

DRUGS (1)
  1. SOLU-MEDROL [Suspect]
     Indication: OPTIC NEURITIS
     Dosage: DAILY DOSE:500MG
     Route: 042

REACTIONS (2)
  - HALLUCINATION, VISUAL [None]
  - VISUAL ACUITY REDUCED [None]
